FAERS Safety Report 20493402 (Version 2)
Quarter: 2022Q1

REPORT INFORMATION
  Report Type: Spontaneous
  Country: AR (occurrence: AR)
  Receive Date: 20220220
  Receipt Date: 20220327
  Transmission Date: 20220424
  Serious: Yes (Other)
  Sender: FDA-Public Use
  Company Number: AR-PFIZER INC-202200245929

PATIENT
  Age: 56 Year
  Sex: Female

DRUGS (1)
  1. ENBREL [Suspect]
     Active Substance: ETANERCEPT
     Indication: Rheumatoid arthritis
     Dosage: 50 MILLIGRAM, (ONCE EVERY TWO WEEKS)
     Route: 065
     Dates: start: 20110929

REACTIONS (3)
  - Gait inability [Not Recovered/Not Resolved]
  - Off label use [Unknown]
  - Arthropathy [Unknown]

NARRATIVE: CASE EVENT DATE: 20110929
